FAERS Safety Report 7653867-8 (Version None)
Quarter: 2011Q3

REPORT INFORMATION
  Report Type: 
  Country: None (occurrence: None)
  Receive Date: 20110727
  Receipt Date: 20101022
  Transmission Date: 20111222
  Serious: Yes (Hospitalization)
  Sender: FDA-Public Use
  Company Number: OMPQ-PR-1010S-0923

PATIENT
  Age: 40 Year
  Sex: Female

DRUGS (1)
  1. OMNIPAQUE 70 [Suspect]
     Indication: PRODUCT USED FOR UNKNOWN INDICATION
     Dosage: 100 ML, SINGLE DOSE, INTRAVENOUS
     Route: 042
     Dates: start: 20101021, end: 20101021

REACTIONS (5)
  - DYSPNOEA [None]
  - SENSATION OF FOREIGN BODY [None]
  - URTICARIA [None]
  - ANAPHYLACTOID REACTION [None]
  - ERYTHEMA [None]
